FAERS Safety Report 10256011 (Version 5)
Quarter: 2014Q4

REPORT INFORMATION
  Report Type: Report from Study
  Country: FR (occurrence: FR)
  Receive Date: 20140624
  Receipt Date: 20141119
  Transmission Date: 20150528
  Serious: Yes (Life-Threatening, Hospitalization, Other)
  Sender: FDA-Public Use
  Company Number: FR-JNJFOC-20140612263

PATIENT
  Age: 65 Year
  Sex: Male
  Weight: 82 kg

DRUGS (5)
  1. IBRUTINIB [Suspect]
     Active Substance: IBRUTINIB
     Indication: CHRONIC LYMPHOCYTIC LEUKAEMIA
     Route: 048
     Dates: start: 20140627, end: 20140929
  2. IBRUTINIB [Suspect]
     Active Substance: IBRUTINIB
     Indication: CHRONIC LYMPHOCYTIC LEUKAEMIA
     Route: 048
     Dates: start: 20140604, end: 20140627
  3. IBRUTINIB [Suspect]
     Active Substance: IBRUTINIB
     Indication: CHRONIC LYMPHOCYTIC LEUKAEMIA
     Route: 048
     Dates: start: 20140328, end: 20140604
  4. PIPERACILLIN [Concomitant]
     Active Substance: PIPERACILLIN
     Dates: start: 20140605
  5. CIPROFLOXACIN. [Concomitant]
     Active Substance: CIPROFLOXACIN
     Dates: start: 20140605

REACTIONS (5)
  - Purpura [Recovered/Resolved with Sequelae]
  - Pneumonia pseudomonal [Recovered/Resolved]
  - Pulmonary mass [Recovered/Resolved with Sequelae]
  - Systemic inflammatory response syndrome [Unknown]
  - Rash papular [Recovered/Resolved]

NARRATIVE: CASE EVENT DATE: 20140521
